FAERS Safety Report 9414656 (Version 3)
Quarter: 2014Q4

REPORT INFORMATION
  Report Type: Report from Study
  Country: BR (occurrence: BR)
  Receive Date: 20130723
  Receipt Date: 20141117
  Transmission Date: 20150529
  Serious: Yes (Hospitalization, Other)
  Sender: FDA-Public Use
  Company Number: BR-US-EMD SERONO, INC.-7224563

PATIENT
  Age: 52 Year
  Sex: Female

DRUGS (5)
  1. SIMVASTATIN. [Concomitant]
     Active Substance: SIMVASTATIN
     Indication: PRODUCT USED FOR UNKNOWN INDICATION
  2. REBIF [Suspect]
     Active Substance: INTERFERON BETA-1A
     Indication: SECONDARY PROGRESSIVE MULTIPLE SCLEROSIS
     Dates: start: 20060807
  3. FLUOXETINE [Concomitant]
     Active Substance: FLUOXETINE\FLUOXETINE HYDROCHLORIDE
     Indication: PRODUCT USED FOR UNKNOWN INDICATION
  4. AMPLICTIL                          /00011901/ [Concomitant]
     Indication: PRODUCT USED FOR UNKNOWN INDICATION
  5. SYMBICORT [Suspect]
     Active Substance: BUDESONIDE\FORMOTEROL FUMARATE DIHYDRATE
     Indication: ASTHMATIC CRISIS

REACTIONS (3)
  - Chronic sinusitis [Recovering/Resolving]
  - Asthmatic crisis [Recovering/Resolving]
  - Off label use [Unknown]

NARRATIVE: CASE EVENT DATE: 201304
